FAERS Safety Report 15220860 (Version 1)
Quarter: 2018Q3

REPORT INFORMATION
  Report Type: Spontaneous
  Country: US (occurrence: US)
  Receive Date: 20180731
  Receipt Date: 20180731
  Transmission Date: 20181010
  Serious: Yes (Hospitalization)
  Sender: FDA-Public Use
  Company Number: PHHY2018US051598

PATIENT
  Age: 25 Year
  Sex: Male

DRUGS (2)
  1. TRAMADOL. [Suspect]
     Active Substance: TRAMADOL
     Indication: PRODUCT USED FOR UNKNOWN INDICATION
     Dosage: UNK
     Route: 065
  2. CLARITHROMYCIN. [Suspect]
     Active Substance: CLARITHROMYCIN
     Indication: PRODUCT USED FOR UNKNOWN INDICATION
     Dosage: UNK
     Route: 065

REACTIONS (8)
  - Eye disorder [Recovering/Resolving]
  - Pneumomediastinum [Recovering/Resolving]
  - Stevens-Johnson syndrome [Recovering/Resolving]
  - Odynophagia [Recovering/Resolving]
  - Skin ulcer [Recovering/Resolving]
  - Pneumonia aspiration [Recovering/Resolving]
  - Hypoxia [Recovering/Resolving]
  - Pneumothorax [Recovering/Resolving]
